FAERS Safety Report 8447269-4 (Version None)
Quarter: 2012Q2

REPORT INFORMATION
  Report Type: 
  Country: None (occurrence: None)
  Receive Date: 20120619
  Receipt Date: 20120611
  Transmission Date: 20120825
  Serious: Yes (Hospitalization)
  Sender: FDA-Public Use
  Company Number: PHHO2004BE05970

PATIENT
  Sex: Male
  Weight: 62.6 kg

DRUGS (5)
  1. DIOVAN [Suspect]
     Dosage: 40MG
     Dates: start: 20030730
  2. PREDNISONE [Concomitant]
  3. PROGRAF [Concomitant]
  4. CELLCEPT [Concomitant]
  5. DIOVAN [Suspect]
     Indication: HYPERTENSION
     Dosage: 40 UNK, UNK

REACTIONS (4)
  - BLOOD CREATININE INCREASED [None]
  - GASTROENTERITIS [None]
  - DEHYDRATION [None]
  - PNEUMONIA MYCOPLASMAL [None]
